FAERS Safety Report 8207038-7 (Version None)
Quarter: 2012Q1

REPORT INFORMATION
  Report Type: 
  Country: None (occurrence: None)
  Receive Date: 20120314
  Receipt Date: 20120306
  Transmission Date: 20120608
  Serious: Yes (Hospitalization)
  Sender: FDA-Public Use
  Company Number: JP-UCBSA-043708

PATIENT
  Age: 12 Year
  Sex: Female
  Weight: 39.2 kg

DRUGS (7)
  1. CLONAZEPAM [Concomitant]
     Indication: EPILEPSY
     Dosage: DOSE : 0.25 MG: FREQUENCY: 2
     Route: 048
     Dates: start: 20090710
  2. LEVETIRACETAM [Suspect]
     Indication: PARTIAL SEIZURES
     Dosage: DAILY DOSE: 2500 MG
     Route: 048
     Dates: start: 20100428, end: 20111026
  3. FLUTICASONE PROPIONATE [Concomitant]
     Indication: RHINITIS ALLERGIC
     Dates: start: 20100214
  4. LEVETIRACETAM [Suspect]
     Dosage: DAILY DOSE: 2000 MG.
     Route: 048
     Dates: start: 20111027
  5. HOCHU-EKKI-TO (CHINESE HERBAL MEDICINE) [Suspect]
     Indication: FATIGUE
     Dosage: DOSE: 1DF: FREQUENCY: 2
     Route: 048
     Dates: start: 20111008
  6. VALPROATE SODIUM [Concomitant]
     Indication: EPILEPSY
     Dosage: DOSE: 200MG; FREQUENCY:2
     Route: 048
     Dates: start: 20090203
  7. FEXOFENADINE HYDROCHLORIDE [Concomitant]
     Indication: RHINITIS ALLERGIC
     Dosage: DOSE: 30MG; FREQUENCY: 2
     Route: 048
     Dates: start: 20100214

REACTIONS (4)
  - CONVERSION DISORDER [None]
  - SEIZURE CLUSTER [None]
  - ABDOMINAL PAIN LOWER [None]
  - STATUS EPILEPTICUS [None]
